FAERS Safety Report 7333121-4 (Version None)
Quarter: 2011Q1

REPORT INFORMATION
  Report Type: 
  Country: None (occurrence: None)
  Receive Date: 20110304
  Receipt Date: 20110220
  Transmission Date: 20110831
  Serious: Yes (Other)
  Sender: FDA-Public Use
  Company Number: US-WATSON-2011-02663

PATIENT
  Age: 38 Year
  Sex: Female

DRUGS (2)
  1. BUPIVACAINE HCL [Suspect]
     Indication: PAIN
     Dosage: UNK
     Route: 037
  2. MORPHINE SULFATE [Suspect]
     Dosage: UNK
     Route: 037

REACTIONS (2)
  - GRANULOMA [None]
  - ADMINISTRATION SITE REACTION [None]
